FAERS Safety Report 8073780-4 (Version None)
Quarter: 2012Q1

REPORT INFORMATION
  Report Type: 
  Country: None (occurrence: None)
  Receive Date: 20120126
  Receipt Date: 20120118
  Transmission Date: 20120608
  Serious: Yes (Hospitalization, Other)
  Sender: FDA-Public Use
  Company Number: CHPA2012US001694

PATIENT
  Age: 43 Year
  Sex: Female

DRUGS (1)
  1. EXCEDRIN EXTRA STRENGTH TABLETS [Suspect]
     Indication: MIGRAINE
     Dosage: 1-2 DF, PRN
     Route: 048
     Dates: start: 20110101

REACTIONS (5)
  - DYSPEPSIA [None]
  - UNDERDOSE [None]
  - NAUSEA [None]
  - STRESS [None]
  - VOMITING [None]
